FAERS Safety Report 6368720-X (Version None)
Quarter: 2009Q3

REPORT INFORMATION
  Report Type: 
  Country: None (occurrence: None)
  Receive Date: 20090917
  Receipt Date: 20090917
  Transmission Date: 20100115
  Serious: Yes (Other)
  Sender: FDA-Public Use
  Company Number: None

PATIENT
  Age: 56 Year
  Sex: Female
  Weight: 61.6892 kg

DRUGS (1)
  1. K-TABS 10MEQ SA ABBOTT LAB [Suspect]
     Indication: BLOOD POTASSIUM DECREASED
     Dosage: 1 TO 3 X DAILY ALL AT ONCE PO OVER 3 OR MORE YRS
     Route: 048
     Dates: start: 20090910, end: 20090914

REACTIONS (11)
  - ABDOMINAL DISTENSION [None]
  - ABDOMINAL PAIN UPPER [None]
  - BURNING SENSATION [None]
  - CONFUSIONAL STATE [None]
  - FLUID RETENTION [None]
  - LISTLESS [None]
  - MUSCLE TIGHTNESS [None]
  - MUSCULAR WEAKNESS [None]
  - PARAESTHESIA [None]
  - SENSATION OF HEAVINESS [None]
  - SENSORY DISTURBANCE [None]
